FAERS Safety Report 8554211-4 (Version None)
Quarter: 2012Q3

REPORT INFORMATION
  Report Type: 
  Country: None (occurrence: None)
  Receive Date: 20120731
  Receipt Date: 20120718
  Transmission Date: 20120928
  Serious: Yes (Hospitalization)
  Sender: FDA-Public Use
  Company Number: CO-ELI_LILLY_AND_COMPANY-CO201207006447

PATIENT
  Age: 28 Year
  Sex: Female

DRUGS (2)
  1. HUMALOG [Suspect]
     Dosage: 3 IU, TID
     Route: 058
     Dates: start: 20120501
  2. HUMULIN N [Suspect]
     Dosage: 4 IU, QD
     Route: 058
     Dates: start: 20120501

REACTIONS (2)
  - DEHYDRATION [None]
  - MATERNAL EXPOSURE DURING PREGNANCY [None]
